FAERS Safety Report 10505459 (Version 10)
Quarter: 2016Q2

REPORT INFORMATION
  Report Type: Report from Study
  Country: US (occurrence: US)
  Receive Date: 20141008
  Receipt Date: 20160428
  Transmission Date: 20160815
  Serious: Yes (Hospitalization)
  Sender: FDA-Public Use
  Company Number: US-SA-2014SA098376

PATIENT
  Age: 67 Year
  Sex: Female
  Weight: 54 kg

DRUGS (10)
  1. HYDROXYZINE [Concomitant]
     Active Substance: HYDROXYZINE\HYDROXYZINE HYDROCHLORIDE
  2. AUBAGIO [Suspect]
     Active Substance: TERIFLUNOMIDE
     Indication: MULTIPLE SCLEROSIS
     Route: 048
     Dates: start: 20140319
  3. AMANTADINE [Concomitant]
     Active Substance: AMANTADINE
  4. CLONAZEPAM. [Concomitant]
     Active Substance: CLONAZEPAM
  5. TIZANIDINE. [Concomitant]
     Active Substance: TIZANIDINE
  6. AMBIEN [Concomitant]
     Active Substance: ZOLPIDEM TARTRATE
  7. OSPHENA [Concomitant]
     Active Substance: OSPEMIFENE
  8. DULOXETINE. [Concomitant]
     Active Substance: DULOXETINE
  9. PERCOCET [Concomitant]
     Active Substance: ACETAMINOPHEN\OXYCODONE HYDROCHLORIDE
  10. ATORVASTATIN [Concomitant]
     Active Substance: ATORVASTATIN

REACTIONS (21)
  - Tremor [Not Recovered/Not Resolved]
  - Gait disturbance [Unknown]
  - Dysgraphia [Unknown]
  - Unevaluable event [Unknown]
  - Spinal column stenosis [Unknown]
  - Muscle spasms [Unknown]
  - Stress [Unknown]
  - Nausea [Unknown]
  - Large intestinal ulcer [Recovering/Resolving]
  - Muscular weakness [Unknown]
  - Diverticulitis [Recovering/Resolving]
  - Pain [Recovering/Resolving]
  - Dehydration [Recovering/Resolving]
  - Dyspepsia [Unknown]
  - Multiple sclerosis relapse [Not Recovered/Not Resolved]
  - Diarrhoea [Recovering/Resolving]
  - Product packaging issue [Unknown]
  - Malaise [Unknown]
  - Insomnia [Unknown]
  - Vomiting [Recovered/Resolved]
  - Joint instability [Unknown]

NARRATIVE: CASE EVENT DATE: 201510
